FAERS Safety Report 6166342-7 (Version None)
Quarter: 2009Q2

REPORT INFORMATION
  Report Type: 
  Country: None (occurrence: None)
  Receive Date: 20090422
  Receipt Date: 20090422
  Transmission Date: 20091009
  Serious: Yes (Life-Threatening, Hospitalization)
  Sender: FDA-Public Use
  Company Number: None

PATIENT
  Age: 49 Year
  Sex: Male
  Weight: 113 kg

DRUGS (1)
  1. IODIXANOL [Suspect]
     Indication: ANGIOGRAM
     Dosage: 16000 MG ONCE IV
     Route: 042
     Dates: start: 20090414, end: 20090414

REACTIONS (2)
  - ANGIOEDEMA [None]
  - DYSPNOEA [None]
